FAERS Safety Report 5518315-2 (Version None)
Quarter: 2007Q4

REPORT INFORMATION
  Report Type: 
  Country: None (occurrence: None)
  Receive Date: 20071114
  Receipt Date: 20071114
  Transmission Date: 20080405
  Serious: No
  Sender: FDA-Public Use
  Company Number: None

PATIENT
  Age: 43 Year
  Sex: Female
  Weight: 61.2356 kg

DRUGS (2)
  1. GEODON [Suspect]
     Indication: DEPRESSION
     Dosage: 200 MG AM / PM
     Dates: start: 20070101, end: 20070101
  2. GEODON [Suspect]
     Indication: DEPRESSION
     Dosage: 200 MG AM / PM
     Dates: start: 20060101, end: 20070730

REACTIONS (11)
  - ANHEDONIA [None]
  - APATHY [None]
  - BRAIN DAMAGE [None]
  - CRYING [None]
  - FACIAL PALSY [None]
  - FEELING ABNORMAL [None]
  - FLAT AFFECT [None]
  - IMPAIRED WORK ABILITY [None]
  - MUSCLE TIGHTNESS [None]
  - MUSCULOSKELETAL STIFFNESS [None]
  - PERSONALITY CHANGE [None]
